FAERS Safety Report 24309707 (Version 1)
Quarter: 2024Q3

REPORT INFORMATION
  Report Type: Report from Study
  Country: US (occurrence: US)
  Receive Date: 20240912
  Receipt Date: 20240912
  Transmission Date: 20241017
  Serious: Yes (Other)
  Sender: NOVARTIS
  Company Number: US-002147023-NVSC2024US011186

PATIENT
  Age: 35 Year
  Sex: Female

DRUGS (1)
  1. KESIMPTA [Suspect]
     Active Substance: OFATUMUMAB
     Indication: Relapsing multiple sclerosis
     Dosage: 20 MG, QMO
     Route: 058
     Dates: start: 20230705

REACTIONS (15)
  - Cholecystitis infective [Unknown]
  - Food allergy [Unknown]
  - Influenza like illness [Unknown]
  - Pain [Unknown]
  - Chills [Unknown]
  - Headache [Unknown]
  - Weight decreased [Unknown]
  - Scar [Unknown]
  - Localised infection [Unknown]
  - Urinary tract infection [Unknown]
  - Inappropriate schedule of product administration [Unknown]
  - Fatigue [Unknown]
  - Anaemia [Unknown]
  - Anxiety [Unknown]
  - COVID-19 [Unknown]

NARRATIVE: CASE EVENT DATE: 20230706
